FAERS Safety Report 5337257-9 (Version None)
Quarter: 2007Q2

REPORT INFORMATION
  Report Type: 
  Country: None (occurrence: None)
  Receive Date: 20070529
  Receipt Date: 20070520
  Transmission Date: 20071010
  Serious: Yes (Hospitalization)
  Sender: FDA-Public Use
  Company Number: B0465085A

PATIENT
  Age: 57 Year
  Sex: Male

DRUGS (8)
  1. GW679769 [Suspect]
     Indication: PROPHYLAXIS OF NAUSEA AND VOMITING
     Route: 050
     Dates: start: 20070321, end: 20070323
  2. ONDANSETRON [Suspect]
     Route: 042
     Dates: start: 20070321, end: 20070321
  3. DEXAMETHASONE [Suspect]
     Route: 048
     Dates: start: 20070321, end: 20070324
  4. GW679769 [Suspect]
     Route: 048
     Dates: start: 20070321, end: 20070323
  5. CEFTAZIDINE [Concomitant]
     Indication: NEUTROPENIA
     Dosage: 1G THREE TIMES PER DAY
     Route: 042
     Dates: start: 20070330, end: 20070404
  6. NEUPOGEN [Concomitant]
     Indication: NEUTROPENIA
     Dosage: 300MCG PER DAY
     Route: 058
     Dates: start: 20070330, end: 20070401
  7. CISPLATIN [Concomitant]
  8. DOXORUBICIN [Concomitant]

REACTIONS (6)
  - BLOOD CHLORIDE DECREASED [None]
  - BLOOD POTASSIUM DECREASED [None]
  - DIARRHOEA [None]
  - FEBRILE NEUTROPENIA [None]
  - GASTROINTESTINAL HAEMORRHAGE [None]
  - HYPONATRAEMIA [None]
